FAERS Safety Report 8737614 (Version 2)
Quarter: 2012Q4

REPORT INFORMATION
  Report Type: 
  Country: DK (occurrence: DK)
  Receive Date: 20120822
  Receipt Date: 20120904
  Transmission Date: 20130627
  Serious: Yes (Disabling)
  Sender: FDA-Public Use
  Company Number: DK-009507513-1208DNK002921

PATIENT

DRUGS (1)
  1. PROPECIA [Suspect]
     Dosage: UNK
     Dates: start: 200202

REACTIONS (4)
  - Pelvic pain [Not Recovered/Not Resolved]
  - Prostatitis [Not Recovered/Not Resolved]
  - Mobility decreased [Unknown]
  - Suicidal ideation [Unknown]
